FAERS Safety Report 5365769-0 (Version None)
Quarter: 2007Q2

REPORT INFORMATION
  Report Type: 
  Country: None (occurrence: None)
  Receive Date: 20070611
  Receipt Date: 20070322
  Transmission Date: 20071010
  Serious: Yes (Hospitalization)
  Sender: FDA-Public Use
  Company Number: USA-2007-0026854

PATIENT
  Age: 65 Year
  Sex: Female

DRUGS (7)
  1. OXYCONTIN HCL [Suspect]
     Indication: BACK PAIN
     Dosage: 10 MG, Q12H, ORAL
     Route: 048
     Dates: start: 20070309, end: 20070322
  2. ANTINEOPLASTIC AGENTS [Concomitant]
  3. FEXOFENADINE [Concomitant]
  4. HYDROCODONE BITARTRATE [Concomitant]
  5. AMBIEN [Concomitant]
  6. ENALAPRIL MALEATE [Concomitant]
  7. LORAZEPAM [Concomitant]

REACTIONS (8)
  - DRUG INEFFECTIVE [None]
  - FEELING ABNORMAL [None]
  - MALAISE [None]
  - MEDICATION RESIDUE [None]
  - NAUSEA [None]
  - PAIN [None]
  - PYREXIA [None]
  - WRONG TECHNIQUE IN DRUG USAGE PROCESS [None]
